FAERS Safety Report 7179313-9 (Version None)
Quarter: 2010Q4

REPORT INFORMATION
  Report Type: 
  Country: None (occurrence: None)
  Receive Date: 20101221
  Receipt Date: 20101217
  Transmission Date: 20110411
  Serious: Yes (Death)
  Sender: FDA-Public Use
  Company Number: PHHY2010JP86187

PATIENT
  Sex: Male

DRUGS (5)
  1. ZOLEDRONATE T29581+ [Suspect]
     Indication: METASTASES TO BONE
     Dosage: 4 MG, EVERY 4 WEEKS
     Route: 041
     Dates: start: 20070903, end: 20090911
  2. LOXONIN [Concomitant]
     Dosage: 180 MG, UNK
     Route: 048
  3. OXYCONTIN [Concomitant]
     Dosage: 10 MG, UNK
     Route: 048
  4. MAGNESIUM OXIDE [Concomitant]
     Dosage: 2 G, UNK
  5. MUCOSTA [Concomitant]
     Dosage: 300 MG, UNK
     Route: 048

REACTIONS (1)
  - DEATH [None]
